FAERS Safety Report 11130321 (Version 3)
Quarter: 2015Q2

REPORT INFORMATION
  Report Type: Spontaneous
  Country: US (occurrence: US)
  Receive Date: 20150522
  Receipt Date: 20150611
  Transmission Date: 20150821
  Serious: No
  Sender: FDA-Public Use
  Company Number: US-AMGEN-USASP2015048770

PATIENT
  Age: 62 Year
  Sex: Male
  Weight: 90.7 kg

DRUGS (4)
  1. ENBREL [Suspect]
     Active Substance: ETANERCEPT
     Indication: PSORIASIS
     Dosage: 50 MG, QWK
     Route: 058
     Dates: start: 20150323, end: 20150502
  2. CLINDAMYCIN [Concomitant]
     Active Substance: CLINDAMYCIN\CLINDAMYCIN PHOSPHATE
     Indication: PSORIASIS
     Dosage: 150 MG, QD
     Route: 048
     Dates: start: 20150420, end: 20150504
  3. KEFLEX [Concomitant]
     Active Substance: CEPHALEXIN
     Indication: PSORIASIS
     Dosage: 250 MG, TID
     Route: 048
     Dates: start: 20150420, end: 20150515
  4. NIZORAL [Concomitant]
     Active Substance: KETOCONAZOLE
     Indication: PSORIASIS
     Dosage: 2 %, 1-3X A WEEK
     Route: 061
     Dates: start: 20150420

REACTIONS (1)
  - Rash [Recovering/Resolving]

NARRATIVE: CASE EVENT DATE: 20150330
